FAERS Safety Report 18027430 (Version 2)
Quarter: 2020Q3

REPORT INFORMATION
  Report Type: Spontaneous
  Country: ES (occurrence: ES)
  Receive Date: 20200715
  Receipt Date: 20200717
  Transmission Date: 20201103
  Serious: Yes (Hospitalization, Other)
  Sender: FDA-Public Use
  Company Number: ES-BIODELIVERY SCIENCES INTERNATIONAL-2020BDSI0450

PATIENT
  Age: 16 Year
  Sex: Female

DRUGS (3)
  1. SELUMETINIB. [Suspect]
     Active Substance: SELUMETINIB
     Indication: NEUROFIBROMATOSIS
     Route: 048
     Dates: start: 201910
  2. SELUMETINIB. [Suspect]
     Active Substance: SELUMETINIB
     Indication: NEUROFIBROMA
  3. FENTANYL CITRATE. [Suspect]
     Active Substance: FENTANYL CITRATE
     Indication: PAIN
     Route: 065

REACTIONS (8)
  - Hypertension [Unknown]
  - Drug ineffective [Unknown]
  - Toxicity to various agents [Unknown]
  - Gait disturbance [Unknown]
  - Disease progression [Not Recovered/Not Resolved]
  - Pain [Unknown]
  - Tachycardia [Unknown]
  - Vertigo [Unknown]

NARRATIVE: CASE EVENT DATE: 202002
